FAERS Safety Report 6633215-2 (Version None)
Quarter: 2010Q1

REPORT INFORMATION
  Report Type: 
  Country: None (occurrence: None)
  Receive Date: 20100312
  Receipt Date: 20100310
  Transmission Date: 20100710
  Serious: Yes (Death, Other)
  Sender: FDA-Public Use
  Company Number: PHHY2009GB30073

PATIENT
  Sex: Female

DRUGS (5)
  1. CLOZARIL [Suspect]
     Indication: SCHIZOPHRENIA
     Dosage: UNK
     Route: 048
     Dates: start: 20060730
  2. METFORMIN HCL [Concomitant]
  3. LANSOPRAZOLE [Concomitant]
  4. SIMVASTATIN [Concomitant]
  5. INSULIN [Concomitant]

REACTIONS (13)
  - ARTERIOSCLEROSIS CORONARY ARTERY [None]
  - BRONCHITIS [None]
  - BRONCHOPNEUMONIA [None]
  - DEATH [None]
  - DRUG ABUSE [None]
  - HEPATIC STEATOSIS [None]
  - HYPOGLYCAEMIA [None]
  - INTENTIONAL SELF-INJURY [None]
  - MENINGIOMA [None]
  - PULMONARY CONGESTION [None]
  - PURULENT DISCHARGE [None]
  - SCAR [None]
  - VENOUS INSUFFICIENCY [None]
